FAERS Safety Report 18953004 (Version 2)
Quarter: 2021Q2

REPORT INFORMATION
  Report Type: Report from Study
  Country: US (occurrence: US)
  Receive Date: 20210301
  Receipt Date: 20210413
  Transmission Date: 20210717
  Serious: Yes (Other)
  Sender: FDA-Public Use
  Company Number: NVSC2021US036670

PATIENT
  Sex: Female

DRUGS (1)
  1. KESIMPTA [Suspect]
     Active Substance: OFATUMUMAB
     Indication: RELAPSING-REMITTING MULTIPLE SCLEROSIS
     Dosage: 20 MG, QMO (FORMULATION: SOLUTION)(BENEATH THE SKIN USUALLY VIA INJECTION)
     Route: 058
     Dates: start: 20201120

REACTIONS (1)
  - Therapy non-responder [Not Recovered/Not Resolved]
